FAERS Safety Report 6982706-3 (Version None)
Quarter: 2010Q3

REPORT INFORMATION
  Report Type: 
  Country: None (occurrence: None)
  Receive Date: 20100914
  Receipt Date: 20100311
  Transmission Date: 20110219
  Serious: No
  Sender: FDA-Public Use
  Company Number: US-PFIZER INC-2010032552

PATIENT
  Sex: Male
  Weight: 71 kg

DRUGS (2)
  1. LYRICA [Suspect]
     Indication: NEUROPATHY PERIPHERAL
     Dosage: 75 MG, 1X/DAY
     Route: 048
     Dates: start: 20100310, end: 20100311
  2. LEXAPRO [Concomitant]
     Dosage: 10 MG, 1X/DAY

REACTIONS (1)
  - INFLUENZA LIKE ILLNESS [None]
